FAERS Safety Report 4518305-2 (Version None)
Quarter: 2004Q4

REPORT INFORMATION
  Report Type: 
  Country: None (occurrence: None)
  Receive Date: 20041202
  Receipt Date: 20041123
  Transmission Date: 20050328
  Serious: Yes (Hospitalization)
  Sender: FDA-Public Use
  Company Number: 200415701BCC

PATIENT
  Age: 64 Year
  Sex: Female
  Weight: 78.0187 kg

DRUGS (1)
  1. ASPIRIN [Suspect]
     Indication: PAIN
     Dosage: 325 MG, Q4HR, ORAL
     Route: 048
     Dates: start: 20040107, end: 20040112

REACTIONS (3)
  - FAECES DISCOLOURED [None]
  - GASTRIC PERFORATION [None]
  - HAEMATEMESIS [None]
